FAERS Safety Report 6373393-6 (Version None)
Quarter: 2009Q3

REPORT INFORMATION
  Report Type: 
  Country: None (occurrence: None)
  Receive Date: 20090924
  Receipt Date: 20090304
  Transmission Date: 20100115
  Serious: No
  Sender: FDA-Public Use
  Company Number: US-ASTRAZENECA-2009UW05827

PATIENT
  Age: 51 Year
  Sex: Female

DRUGS (1)
  1. SEROQUEL [Suspect]
     Dosage: UNKNOWN
     Route: 048

REACTIONS (7)
  - ABNORMAL DREAMS [None]
  - AFFECT LABILITY [None]
  - DRUG DOSE OMISSION [None]
  - FEELING ABNORMAL [None]
  - INFLUENZA [None]
  - PRURITUS [None]
  - TREMOR [None]
